FAERS Safety Report 10656960 (Version 3)
Quarter: 2015Q3

REPORT INFORMATION
  Report Type: Report from Study
  Country: EG (occurrence: EG)
  Receive Date: 20141217
  Receipt Date: 20150729
  Transmission Date: 20151125
  Serious: No
  Sender: FDA-Public Use
  Company Number: PHHY2014EG081738

PATIENT
  Age: 7 Year
  Sex: Male

DRUGS (2)
  1. ICL670A [Suspect]
     Active Substance: DEFERASIROX
     Indication: HAEMOSIDEROSIS
  2. ICL670A [Suspect]
     Active Substance: DEFERASIROX
     Indication: THALASSAEMIA
     Dosage: 500 OT,
     Route: 048
     Dates: start: 20120414, end: 20140629

REACTIONS (4)
  - Serum ferritin increased [Unknown]
  - Haemolytic anaemia [Unknown]
  - Middle ear effusion [Not Recovered/Not Resolved]
  - Conductive deafness [Not Recovered/Not Resolved]

NARRATIVE: CASE EVENT DATE: 20140610
